FAERS Safety Report 8939908 (Version 2)
Quarter: 2012Q4

REPORT INFORMATION
  Report Type: 
  Country: US (occurrence: US)
  Receive Date: 20121121
  Receipt Date: 20121212
  Transmission Date: 20130627
  Serious: Yes (Death, Other)
  Sender: FDA-Public Use
  Company Number: US-ASTELLAS-1109505

PATIENT
  Age: 47 Year
  Sex: Female

DRUGS (1)
  1. TARCEVA [Suspect]
     Indication: PANCREATIC CARCINOMA
     Route: 048
     Dates: start: 200704, end: 20070503

REACTIONS (3)
  - Pancreatic carcinoma [Fatal]
  - Malaise [Unknown]
  - Gastrointestinal obstruction [Unknown]
